FAERS Safety Report 9262553 (Version 1)
Quarter: 2013Q2

REPORT INFORMATION
  Report Type: Spontaneous
  Country: GB (occurrence: GB)
  Receive Date: 20130430
  Receipt Date: 20130430
  Transmission Date: 20140414
  Serious: Yes (Life-Threatening, Other)
  Sender: FDA-Public Use
  Company Number: GB-ACCORD-017341

PATIENT
  Age: 6 Hour
  Sex: Female
  Weight: 2.47 kg

DRUGS (4)
  1. QUETIAPINE FUMARATE [Suspect]
     Indication: PERSONALITY DISORDER
     Route: 064
  2. SERTRALINE [Suspect]
     Indication: DEPRESSION
     Route: 064
     Dates: start: 20130301
  3. DIAZEPAM [Suspect]
     Route: 064
  4. ZOPICLONE [Suspect]
     Route: 064

REACTIONS (5)
  - Apnoea neonatal [Recovered/Resolved]
  - Hypotonia [Recovered/Resolved]
  - Unresponsive to stimuli [Recovered/Resolved]
  - Cyanosis [Recovered/Resolved]
  - Foetal exposure during pregnancy [Recovered/Resolved]
